FAERS Safety Report 8869682 (Version 2)
Quarter: 2013Q1

REPORT INFORMATION
  Report Type: Report from Study
  Country: CA (occurrence: CA)
  Receive Date: 20121028
  Receipt Date: 20130102
  Transmission Date: 20140127
  Serious: Yes (Other)
  Sender: FDA-Public Use
  Company Number: CA-JNJFOC-20121009496

PATIENT
  Sex: Male
  Weight: 101.6 kg

DRUGS (9)
  1. REMICADE [Suspect]
     Indication: ANKYLOSING SPONDYLITIS
     Route: 042
     Dates: start: 20110627
  2. REMICADE [Suspect]
     Indication: ANKYLOSING SPONDYLITIS
     Dosage: 11TH INFUSION
     Route: 042
     Dates: start: 20121027
  3. NUTRITIONAL SUPPLEMENT [Concomitant]
     Route: 065
  4. ARTHROTEC [Concomitant]
     Route: 065
  5. TYLENOL [Concomitant]
     Route: 065
  6. ACULAR [Concomitant]
     Route: 047
  7. ALL OTHER THERAPEUTICS [Concomitant]
     Route: 047
  8. CHONDROITIN [Concomitant]
     Route: 065
  9. PRED FORTE [Concomitant]
     Route: 047

REACTIONS (2)
  - Cataract [Unknown]
  - Sinusitis [Recovered/Resolved]
